FAERS Safety Report 7041859-1 (Version None)
Quarter: 2010Q4

REPORT INFORMATION
  Report Type: 
  Country: None (occurrence: None)
  Receive Date: 20101013
  Receipt Date: 20100712
  Transmission Date: 20110411
  Serious: No
  Sender: FDA-Public Use
  Company Number: US-PFIZER INC-2010088148

PATIENT
  Sex: Female
  Weight: 68.027 kg

DRUGS (1)
  1. TETRACYCLINE HCL [Suspect]
     Indication: ASTHMA
     Dosage: UNK

REACTIONS (1)
  - TOOTH DISCOLOURATION [None]
